FAERS Safety Report 4505210-0 (Version None)
Quarter: 2004Q4

REPORT INFORMATION
  Report Type: 
  Country: None (occurrence: None)
  Receive Date: 20041015
  Receipt Date: 20040713
  Transmission Date: 20050328
  Serious: Yes (Other)
  Sender: FDA-Public Use
  Company Number: 2004047500

PATIENT
  Age: 18 Year
  Sex: Female
  Weight: 88.4514 kg

DRUGS (3)
  1. NEURONTIN [Suspect]
     Indication: MOOD SWINGS
     Dosage: 900 MG (300 MG, 3 IN 1 D), ORAL
     Route: 048
     Dates: start: 20040101
  2. FLUOXETINE HYDROCHLORIDE [Concomitant]
  3. OLANZAPINE [Concomitant]

REACTIONS (2)
  - SUICIDAL IDEATION [None]
  - TREMOR [None]
